FAERS Safety Report 6413843-X (Version None)
Quarter: 2009Q4

REPORT INFORMATION
  Report Type: 
  Country: None (occurrence: None)
  Receive Date: 20091026
  Receipt Date: 20091019
  Transmission Date: 20100525
  Serious: Yes (Other)
  Sender: FDA-Public Use
  Company Number: A0812031A

PATIENT
  Age: 53 Year
  Sex: Female

DRUGS (9)
  1. REQUIP [Suspect]
     Dates: start: 20060406
  2. REBIF [Suspect]
     Indication: MULTIPLE SCLEROSIS
     Route: 058
     Dates: start: 20051101
  3. CYMBALTA [Suspect]
  4. ADVIL [Concomitant]
  5. PAIN MEDICATIONS [Concomitant]
     Indication: PAIN
  6. LISINOPRIL [Concomitant]
  7. CALCIUM [Concomitant]
  8. VITAMIN D [Concomitant]
  9. FISH OIL [Concomitant]

REACTIONS (2)
  - BIOPSY LIVER [None]
  - HEPATIC ENZYME INCREASED [None]
